FAERS Safety Report 23827300 (Version 1)
Quarter: 2024Q2

REPORT INFORMATION
  Report Type: Spontaneous
  Country: US (occurrence: None)
  Receive Date: 20240506
  Receipt Date: 20240506
  Transmission Date: 20240716
  Serious: Yes (Other)
  Sender: FDA-Public Use
  Company Number: None

PATIENT
  Age: 66 Year
  Sex: Female
  Weight: 101.25 kg

DRUGS (8)
  1. EQUATE BEAUTY DAILY FACIAL MOISTURIZER BROAD SPECTRUM SPF-15 SUNSCREEN [Suspect]
     Active Substance: AVOBENZONE\OCTOCRYLENE
     Indication: Prophylaxis against solar radiation
     Dates: start: 20240424, end: 20240424
  2. CHLORTHALIDONE [Concomitant]
     Active Substance: CHLORTHALIDONE
  3. LAMOTRIGINE [Concomitant]
     Active Substance: LAMOTRIGINE
  4. TIMOLOL [Concomitant]
     Active Substance: TIMOLOL
  5. LATANOPROST [Concomitant]
     Active Substance: LATANOPROST
  6. IBUPROFEN [Concomitant]
     Active Substance: IBUPROFEN
  7. ESTER-C WITH BIOFLAVONOIDS [Concomitant]
  8. NATURE MADE MULTIVITAMINS [Concomitant]

REACTIONS (5)
  - Skin burning sensation [None]
  - Erythema [None]
  - Skin exfoliation [None]
  - Skin exfoliation [None]
  - Nonspecific reaction [None]

NARRATIVE: CASE EVENT DATE: 20240424
